FAERS Safety Report 6708371-8 (Version None)
Quarter: 2010Q2

REPORT INFORMATION
  Report Type: 
  Country: None (occurrence: None)
  Receive Date: 20100503
  Receipt Date: 20090903
  Transmission Date: 20101027
  Serious: No
  Sender: FDA-Public Use
  Company Number: US-ASTRAZENECA-2009SE11725

PATIENT
  Age: 80 Year
  Sex: Female
  Weight: 52.2 kg

DRUGS (2)
  1. NEXIUM [Suspect]
     Indication: ABDOMINAL DISCOMFORT
     Route: 048
  2. IRON PILLS [Concomitant]

REACTIONS (3)
  - BLOOD DISORDER [None]
  - BLOOD IRON DECREASED [None]
  - CONSTIPATION [None]
